FAERS Safety Report 16380586 (Version 1)
Quarter: 2019Q2

REPORT INFORMATION
  Report Type: Spontaneous
  Country: FR (occurrence: FR)
  Receive Date: 20190601
  Receipt Date: 20190601
  Transmission Date: 20190711
  Serious: Yes (Other)
  Sender: FDA-Public Use
  Company Number: FR-AUROBINDO-AUR-APL-2019-031248

PATIENT

DRUGS (3)
  1. TRAMADOL TABLET [Suspect]
     Active Substance: TRAMADOL
     Dosage: 12 DOSAGE FORM
     Route: 048
  2. TRAMADOL HYDROCHLORIDE. [Suspect]
     Active Substance: TRAMADOL HYDROCHLORIDE
     Indication: PROCEDURAL PAIN
     Dosage: 50 MG, UNK
     Route: 065
  3. TRAMADOL TABLET [Suspect]
     Active Substance: TRAMADOL
     Indication: PROCEDURAL PAIN
     Dosage: 100 MG, UNK
     Route: 048

REACTIONS (14)
  - Intentional product misuse [Recovered/Resolved]
  - Drug tolerance [Unknown]
  - Reversed hot-cold sensation [Recovered/Resolved]
  - Withdrawal syndrome [Recovered/Resolved]
  - Tic [Recovered/Resolved]
  - Euphoric mood [Unknown]
  - Pruritus [Recovered/Resolved]
  - Bone pain [Unknown]
  - Fatigue [Recovered/Resolved]
  - Intentional overdose [Recovered/Resolved]
  - Drug dependence [Recovered/Resolved with Sequelae]
  - Urinary retention [Recovered/Resolved]
  - Loss of personal independence in daily activities [Unknown]
  - Drug ineffective [Unknown]
